FAERS Safety Report 23089304 (Version 1)
Quarter: 2023Q4

REPORT INFORMATION
  Report Type: Spontaneous
  Country: US (occurrence: US)
  Receive Date: 20231020
  Receipt Date: 20231020
  Transmission Date: 20240110
  Serious: No
  Sender: FDA-Public Use
  Company Number: US-GSK-US2023139767

PATIENT
  Age: 47 Year
  Sex: Female

DRUGS (1)
  1. BREO ELLIPTA [Suspect]
     Active Substance: FLUTICASONE FUROATE\VILANTEROL TRIFENATATE
     Indication: Asthma
     Dosage: 1 PUFF(S), QD; 200/25 30 INHAL

REACTIONS (4)
  - Saliva altered [Unknown]
  - Cough [Unknown]
  - Chest discomfort [Unknown]
  - Product use issue [Unknown]

NARRATIVE: CASE EVENT DATE: 20230701
